FAERS Safety Report 6915220-1 (Version None)
Quarter: 2010Q3

REPORT INFORMATION
  Report Type: 
  Country: None (occurrence: None)
  Receive Date: 20100805
  Receipt Date: 20100805
  Transmission Date: 20110219
  Serious: Yes (Other)
  Sender: FDA-Public Use
  Company Number: None

PATIENT
  Age: 46 Year
  Sex: Female
  Weight: 86.1834 kg

DRUGS (2)
  1. LEVAQUIN [Suspect]
     Indication: BRONCHITIS
     Dosage: PO
     Route: 048
     Dates: start: 20060119, end: 20060216
  2. AVELOX [Suspect]
     Indication: BRONCHITIS
     Dosage: PO
     Route: 048
     Dates: start: 20060320, end: 20060419

REACTIONS (12)
  - ARTHRALGIA [None]
  - ASTHENIA [None]
  - BURSITIS [None]
  - CARPAL TUNNEL SYNDROME [None]
  - CARTILAGE INJURY [None]
  - EPICONDYLITIS [None]
  - FATIGUE [None]
  - HYPOAESTHESIA [None]
  - JOINT STIFFNESS [None]
  - MUSCULAR WEAKNESS [None]
  - PARAESTHESIA [None]
  - TENDONITIS [None]
